FAERS Safety Report 9476373 (Version 5)
Quarter: 2014Q1

REPORT INFORMATION
  Report Type: Spontaneous
  Country: US (occurrence: US)
  Receive Date: 20130826
  Receipt Date: 20140327
  Transmission Date: 20141002
  Serious: Yes (Death, Hospitalization)
  Sender: FDA-Public Use
  Company Number: US-JNJFOC-20130812578

PATIENT
  Age: 56 Year
  Sex: Male
  Weight: 204.12 kg

DRUGS (13)
  1. STELARA [Suspect]
     Indication: PSORIASIS
     Route: 058
     Dates: start: 20101004, end: 20130509
  2. ISOSORBIDE MONONITRATE [Concomitant]
     Route: 065
  3. XANAX [Concomitant]
     Route: 065
  4. OMEPRAZOLE [Concomitant]
     Route: 065
  5. DIOVAN [Concomitant]
     Route: 065
  6. PRAVASTATIN [Concomitant]
     Route: 065
  7. VERAPAMIL [Concomitant]
     Route: 065
  8. SINGULAIR [Concomitant]
     Route: 065
  9. METOPROLOL [Concomitant]
     Route: 065
  10. PRADAXA [Concomitant]
     Route: 065
  11. CITALOPRAM [Concomitant]
     Route: 065
  12. HUMULIN R [Concomitant]
     Route: 065
  13. FUROSEMIDE [Concomitant]
     Route: 065

REACTIONS (3)
  - Pneumothorax [Fatal]
  - Procedural complication [Fatal]
  - Aortic stenosis [Unknown]
